FAERS Safety Report 7038258-5 (Version None)
Quarter: 2010Q4

REPORT INFORMATION
  Report Type: 
  Country: None (occurrence: None)
  Receive Date: 20101011
  Receipt Date: 20090914
  Transmission Date: 20110411
  Serious: No
  Sender: FDA-Public Use
  Company Number: US-PFIZER INC-2009273095

PATIENT
  Sex: Female
  Weight: 74.8 kg

DRUGS (1)
  1. GABAPENTIN [Suspect]
     Dosage: 300 MG, 3X/DAY
     Dates: start: 20070501

REACTIONS (1)
  - HOT FLUSH [None]
